FAERS Safety Report 14947464 (Version 1)
Quarter: 2018Q2

REPORT INFORMATION
  Report Type: Spontaneous
  Country: US (occurrence: US)
  Receive Date: 20180529
  Receipt Date: 20180529
  Transmission Date: 20180711
  Serious: No
  Sender: FDA-Public Use
  Company Number: US-MYLANLABS-2018M1029880

PATIENT
  Sex: Female
  Weight: 60 kg

DRUGS (1)
  1. THIOTHIXENE CAPSULES, USP [Suspect]
     Active Substance: THIOTHIXENE
     Indication: SCHIZOPHRENIA
     Dosage: 2 DF, PM
     Route: 048
     Dates: start: 1987

REACTIONS (3)
  - Motion sickness [Not Recovered/Not Resolved]
  - Irritability [Not Recovered/Not Resolved]
  - Drug dose omission [Unknown]
